FAERS Safety Report 20876106 (Version 1)
Quarter: 2022Q2

REPORT INFORMATION
  Report Type: Spontaneous
  Country: US (occurrence: US)
  Receive Date: 20220526
  Receipt Date: 20220526
  Transmission Date: 20220721
  Serious: No
  Sender: FDA-Public Use
  Company Number: US-NOVEN PHARMACEUTICALS, INC.-2021-NOV-US003720

PATIENT
  Sex: Male

DRUGS (1)
  1. DAYTRANA [Suspect]
     Active Substance: METHYLPHENIDATE
     Indication: Product used for unknown indication
     Dosage: UNK, UNKNOWN
     Route: 062
     Dates: start: 2020

REACTIONS (3)
  - Dermatitis contact [Unknown]
  - Adhesive tape use [Unknown]
  - Product adhesion issue [Not Recovered/Not Resolved]
